FAERS Safety Report 24150329 (Version 2)
Quarter: 2024Q3

REPORT INFORMATION
  Report Type: Spontaneous
  Country: CA (occurrence: CA)
  Receive Date: 20240730
  Receipt Date: 20240911
  Transmission Date: 20241016
  Serious: Yes (Other)
  Sender: CELLTRION
  Company Number: CA-PFIZER INC-202400221590

PATIENT

DRUGS (3)
  1. INFLECTRA [Suspect]
     Active Substance: INFLIXIMAB-DYYB
     Indication: Crohn^s disease
     Dosage: 600 MG, EVERY 6 WEEKS
     Route: 042
     Dates: start: 20240606
  2. INFLECTRA [Suspect]
     Active Substance: INFLIXIMAB-DYYB
     Dosage: 600 MG, EVERY 6 WEEKS
     Route: 042
     Dates: start: 20240719
  3. INFLECTRA [Suspect]
     Active Substance: INFLIXIMAB-DYYB
     Dosage: UNK, EVERY 6 WEEKS
     Route: 042
     Dates: start: 20240829

REACTIONS (2)
  - Nephrolithiasis [Unknown]
  - Tooth abscess [Recovering/Resolving]

NARRATIVE: CASE EVENT DATE: 20240101
